FAERS Safety Report 7426575-6 (Version None)
Quarter: 2011Q2

REPORT INFORMATION
  Report Type: 
  Country: None (occurrence: None)
  Receive Date: 20110420
  Receipt Date: 20110101
  Transmission Date: 20111010
  Serious: No
  Sender: FDA-Public Use
  Company Number: US-TEVA-262071USA

PATIENT
  Sex: Female
  Weight: 56.75 kg

DRUGS (5)
  1. SINGULAIR [Concomitant]
     Indication: MULTIPLE ALLERGIES
  2. ZOLOFT [Concomitant]
     Indication: ANXIETY
  3. AMBIEN [Concomitant]
     Indication: INSOMNIA
  4. TRAZODONE HCL [Concomitant]
     Indication: INSOMNIA
  5. PLAN B ONE-STEP [Suspect]
     Indication: POST COITAL CONTRACEPTION
     Dosage: 1.5 MILLIGRAM;
     Route: 048
     Dates: start: 20101230, end: 20101230

REACTIONS (3)
  - ABDOMINAL DISTENSION [None]
  - FATIGUE [None]
  - PELVIC PAIN [None]
